FAERS Safety Report 16333483 (Version 2)
Quarter: 2019Q2

REPORT INFORMATION
  Report Type: Report from Study
  Country: US (occurrence: US)
  Receive Date: 20190520
  Receipt Date: 20190529
  Transmission Date: 20190711
  Serious: Yes (Other)
  Sender: FDA-Public Use
  Company Number: US-JNJFOC-20190521730

PATIENT
  Age: 84 Year
  Sex: Female

DRUGS (1)
  1. IMBRUVICA [Suspect]
     Active Substance: IBRUTINIB
     Indication: CHRONIC LYMPHOCYTIC LEUKAEMIA
     Route: 048
     Dates: start: 20190502

REACTIONS (8)
  - Haemoglobin decreased [Unknown]
  - White blood cell count increased [Unknown]
  - Angina bullosa haemorrhagica [Unknown]
  - Insomnia [Unknown]
  - Muscular weakness [Unknown]
  - Off label use [Unknown]
  - Fluid retention [Unknown]
  - Incorrect dose administered [Unknown]

NARRATIVE: CASE EVENT DATE: 20190502
